FAERS Safety Report 8021058-7 (Version None)
Quarter: 2012Q1

REPORT INFORMATION
  Report Type: 
  Country: None (occurrence: None)
  Receive Date: 20120104
  Receipt Date: 20111222
  Transmission Date: 20120608
  Serious: Yes (Hospitalization, Other)
  Sender: FDA-Public Use
  Company Number: US-JNJFOC-20111200636

PATIENT
  Age: 4 Decade
  Sex: Male

DRUGS (3)
  1. ASACOL [Concomitant]
     Indication: COLITIS ULCERATIVE
     Route: 065
  2. REMICADE [Suspect]
     Indication: COLITIS ULCERATIVE
     Dosage: DOSE: 5 TO 10 MG/KG
     Route: 042
     Dates: start: 20100602, end: 20111020
  3. MERCAPTOPURINE [Concomitant]
     Route: 065

REACTIONS (2)
  - COLECTOMY [None]
  - B-CELL LYMPHOMA [None]
